FAERS Safety Report 9206906 (Version 2)
Quarter: 2013Q2

REPORT INFORMATION
  Report Type: Spontaneous
  Country: US (occurrence: US)
  Receive Date: 20130403
  Receipt Date: 20130429
  Transmission Date: 20140414
  Serious: Yes (Other)
  Sender: FDA-Public Use
  Company Number: US-UCBSA-082168

PATIENT
  Age: 39 Year
  Sex: Female
  Weight: 70.76 kg

DRUGS (3)
  1. CIMZIA [Suspect]
     Indication: CROHN^S DISEASE
     Route: 058
     Dates: start: 20120720, end: 201301
  2. LEVAQUIN [Concomitant]
     Indication: POUCHITIS
     Route: 048
  3. YASMIN [Concomitant]
     Indication: ORAL CONTRACEPTION
     Dosage: 28
     Route: 048

REACTIONS (1)
  - Suicidal ideation [Recovered/Resolved]
